FAERS Safety Report 7047456-6 (Version None)
Quarter: 2010Q4

REPORT INFORMATION
  Report Type: 
  Country: None (occurrence: None)
  Receive Date: 20101015
  Receipt Date: 20101008
  Transmission Date: 20110411
  Serious: Yes (Other)
  Sender: FDA-Public Use
  Company Number: GB-TEVA-251150USA

PATIENT
  Sex: Female

DRUGS (1)
  1. PIMOZIDE TABLETS [Suspect]
     Dosage: THE SUSPECT MEDICATION WAS TAKEN BY THE FATHER
     Route: 065

REACTIONS (2)
  - DIABETES MELLITUS [None]
  - DRUG EXPOSURE DURING PREGNANCY [None]
